FAERS Safety Report 5834761-1 (Version None)
Quarter: 2008Q3

REPORT INFORMATION
  Report Type: 
  Country: None (occurrence: None)
  Receive Date: 20080801
  Receipt Date: 20080723
  Transmission Date: 20090109
  Serious: Yes (Life-Threatening)
  Sender: FDA-Public Use
  Company Number: GXKR2008GB06915

PATIENT
  Age: 3 Year
  Sex: Female
  Weight: 14 kg

DRUGS (2)
  1. OMEPRAZOLE [Suspect]
     Indication: ANTACID THERAPY
     Dosage: 20 MG, INTRAVENOUS
     Route: 042
     Dates: start: 20080630, end: 20080630
  2. ACETAMINOPHEN [Concomitant]

REACTIONS (2)
  - ACCIDENTAL OVERDOSE [None]
  - BRAIN OEDEMA [None]
